FAERS Safety Report 4463000-1 (Version None)
Quarter: 2004Q3

REPORT INFORMATION
  Report Type: 
  Country: None (occurrence: None)
  Receive Date: 20040928
  Receipt Date: 20040920
  Transmission Date: 20050211
  Serious: Yes (Disabling)
  Sender: FDA-Public Use
  Company Number: 2004SE05160

PATIENT
  Age: 50 Year
  Sex: Male
  Weight: 58 kg

DRUGS (4)
  1. SEROQUEL [Suspect]
     Indication: BIPOLAR DISORDER
     Dosage: 100 MG IN THE MORNING AND 300 AT NIGHT
     Dates: start: 20030201, end: 20040701
  2. SEROQUEL [Suspect]
     Indication: MANIA
     Dosage: 100 MG IN THE MORNING AND 300 AT NIGHT
     Dates: start: 20030201, end: 20040701
  3. XANOR [Concomitant]
  4. REMERON [Concomitant]

REACTIONS (2)
  - INSOMNIA [None]
  - IRRITABILITY [None]
